FAERS Safety Report 6121357-X (Version None)
Quarter: 2009Q1

REPORT INFORMATION
  Report Type: 
  Country: None (occurrence: None)
  Receive Date: 20090313
  Receipt Date: 20090313
  Transmission Date: 20090719
  Serious: No
  Sender: FDA-Public Use
  Company Number: None

PATIENT
  Age: 6 Year
  Sex: Male
  Weight: 28.123 kg

DRUGS (2)
  1. MIRALAX [Suspect]
     Indication: CONSTIPATION
     Dosage: 17GRAMS ONCE DAILY PO
     Route: 048
     Dates: start: 20090106, end: 20090108
  2. MIRALAX [Suspect]
     Indication: CONSTIPATION
     Dosage: 17GRAMS ONCE DAILY PO
     Route: 048
     Dates: start: 20090225, end: 20090226

REACTIONS (1)
  - DRUG HYPERSENSITIVITY [None]
